FAERS Safety Report 4951473-7 (Version None)
Quarter: 2006Q1

REPORT INFORMATION
  Report Type: 
  Country: None (occurrence: None)
  Receive Date: 20060317
  Receipt Date: 20060303
  Transmission Date: 20060701
  Serious: Yes (Hospitalization)
  Sender: FDA-Public Use
  Company Number: 28740

PATIENT
  Age: 82 Year
  Sex: Female

DRUGS (4)
  1. MINITRAN 0.2 MG/HR (GLYCERYL TRINITRATE) [Suspect]
     Indication: ISCHAEMIC CARDIOMYOPATHY
     Dosage: 5 MG (0.2 MG/HR,1 IN 1 DAY(S))
     Route: 062
     Dates: start: 20050101
  2. ENAPREN [Suspect]
     Indication: HYPERTENSIVE CARDIOMYOPATHY
     Dosage: 10 MG (10 MG,1 IN 1 DAY(S))
     Route: 048
     Dates: start: 20060218, end: 20060226
  3. MEDROL [Concomitant]
  4. OPTINATE [Suspect]
     Indication: OSTEOPOROSIS
     Dosage: (35 MG, 1 IN 1 WEEK(S))
     Dates: start: 20060216

REACTIONS (3)
  - BRONCHOSTENOSIS [None]
  - COUGH [None]
  - DYSPNOEA [None]
